FAERS Safety Report 9664529 (Version 2)
Quarter: 2013Q4

REPORT INFORMATION
  Report Type: Report from Study
  Country: AU (occurrence: AU)
  Receive Date: 20131101
  Receipt Date: 20131101
  Transmission Date: 20140711
  Serious: Yes (Other)
  Sender: FDA-Public Use
  Company Number: PHHY2013AU084156

PATIENT
  Age: 57 Year
  Sex: Female

DRUGS (2)
  1. CLOZARIL [Suspect]
     Dosage: 50 MG
     Dates: start: 20130722
  2. CLOZARIL [Suspect]
     Dosage: UNK
     Dates: start: 20130724, end: 20130814

REACTIONS (17)
  - Cholecystitis [Unknown]
  - Gallbladder disorder [Unknown]
  - Abdominal pain lower [Unknown]
  - Body temperature increased [Recovered/Resolved]
  - Nausea [Recovered/Resolved]
  - Vomiting [Unknown]
  - Asthma [Unknown]
  - Dyspnoea [Not Recovered/Not Resolved]
  - Oxygen saturation decreased [Unknown]
  - Liver disorder [Unknown]
  - Rhinorrhoea [Unknown]
  - Toxicity to various agents [Unknown]
  - Pain [Unknown]
  - Lethargy [Unknown]
  - Blood pressure increased [Unknown]
  - Tachycardia [Unknown]
  - Upper respiratory tract infection [Unknown]
